FAERS Safety Report 18668598 (Version 2)
Quarter: 2021Q1

REPORT INFORMATION
  Report Type: Spontaneous
  Country: US (occurrence: US)
  Receive Date: 20201228
  Receipt Date: 20210120
  Transmission Date: 20210419
  Serious: No
  Sender: FDA-Public Use
  Company Number: US-MSNLABS-2020MSNSPO00428

PATIENT

DRUGS (9)
  1. PREGABALIN CAPSULES 25MG [Suspect]
     Active Substance: PREGABALIN
     Route: 048
     Dates: start: 20200717
  2. ADVIL [Interacting]
     Active Substance: IBUPROFEN
     Indication: MUSCLE SPASMS
     Route: 065
  3. PREGABALIN CAPSULES 25MG [Suspect]
     Active Substance: PREGABALIN
     Route: 048
     Dates: start: 202009, end: 20201208
  4. PREGABALIN CAPSULES 25MG [Suspect]
     Active Substance: PREGABALIN
     Route: 048
     Dates: start: 20201024
  5. LYRICA [Concomitant]
     Active Substance: PREGABALIN
     Indication: FIBROMYALGIA
  6. FLEXERIL [Interacting]
     Active Substance: CYCLOBENZAPRINE HYDROCHLORIDE
     Indication: MUSCLE RELAXANT THERAPY
     Route: 065
  7. PREGABALIN CAPSULES 25MG [Suspect]
     Active Substance: PREGABALIN
     Indication: NEUROPATHY PERIPHERAL
     Route: 048
     Dates: start: 202007
  8. PREGABALIN CAPSULES 25MG [Suspect]
     Active Substance: PREGABALIN
     Route: 048
     Dates: start: 20200719
  9. LYRICA [Concomitant]
     Active Substance: PREGABALIN
     Indication: NEUROPATHY PERIPHERAL
     Route: 065

REACTIONS (4)
  - Therapeutic product effect decreased [Unknown]
  - Abnormal weight gain [Recovering/Resolving]
  - Peripheral swelling [Recovering/Resolving]
  - Muscle spasms [Recovering/Resolving]

NARRATIVE: CASE EVENT DATE: 202007
